FAERS Safety Report 9062963 (Version 2)
Quarter: 2013Q1

REPORT INFORMATION
  Report Type: Spontaneous
  Country: US (occurrence: US)
  Receive Date: 20130213
  Receipt Date: 20130320
  Transmission Date: 20140127
  Serious: Yes (Other)
  Sender: FDA-Public Use
  Company Number: US-BAYER-2013-017549

PATIENT
  Age: 44 Year
  Sex: Female
  Weight: 67 kg

DRUGS (1)
  1. MIRENA [Suspect]
     Indication: CONTRACEPTION
     Dosage: 20 MCG/24HR, CONT
     Route: 015
     Dates: start: 201206, end: 20130206

REACTIONS (4)
  - Genital haemorrhage [Recovered/Resolved]
  - Dizziness [Recovered/Resolved]
  - Abdominal pain lower [Recovered/Resolved]
  - Nausea [Recovered/Resolved]
